APPROVED DRUG PRODUCT: CHLORTHALIDONE
Active Ingredient: CHLORTHALIDONE
Strength: 25MG
Dosage Form/Route: TABLET;ORAL
Application: A214129 | Product #001 | TE Code: AB
Applicant: AJANTA PHARMA LTD
Approved: Nov 27, 2020 | RLD: No | RS: No | Type: RX